FAERS Safety Report 11784002 (Version 3)
Quarter: 2015Q4

REPORT INFORMATION
  Report Type: Spontaneous
  Country: JP (occurrence: JP)
  Receive Date: 20151128
  Receipt Date: 20151211
  Transmission Date: 20160305
  Serious: Yes (Other)
  Sender: FDA-Public Use
  Company Number: JP-AMGEN-JPNSP2015120805

PATIENT
  Age: 62 Year
  Sex: Female

DRUGS (5)
  1. GRANISETRON [Concomitant]
     Active Substance: GRANISETRON
     Indication: NAUSEA
     Dosage: 3 MG, UNK
     Route: 041
     Dates: start: 20151027, end: 20151027
  2. G-LASTA [Suspect]
     Active Substance: PEGFILGRASTIM
     Indication: COLONY STIMULATING FACTOR PROPHYLAXIS
     Dosage: 3.6 MG, 1X/3WEEKS
     Route: 058
     Dates: start: 20150916, end: 20151028
  3. GRAN [Concomitant]
     Active Substance: FILGRASTIM
     Indication: NEUTROPENIA
     Dosage: UNK
     Route: 065
     Dates: start: 20150901, end: 20150902
  4. ENDOXAN                            /00021102/ [Suspect]
     Active Substance: CYCLOPHOSPHAMIDE
     Indication: BREAST CANCER
     Dosage: 800 MG, 1X/3WEEKS
     Route: 041
     Dates: start: 20150825, end: 20151027
  5. ONETAXOTERE [Suspect]
     Active Substance: DOCETAXEL
     Indication: BREAST CANCER
     Dosage: 100 MG, 1X/3WEEKS
     Route: 041
     Dates: start: 20150825, end: 20151027

REACTIONS (2)
  - Cataract [Unknown]
  - Nausea [Recovered/Resolved]

NARRATIVE: CASE EVENT DATE: 201510
